FAERS Safety Report 20537907 (Version 1)
Quarter: 2022Q1

REPORT INFORMATION
  Report Type: Spontaneous
  Country: US (occurrence: US)
  Receive Date: 20220302
  Receipt Date: 20220302
  Transmission Date: 20220423
  Serious: No
  Sender: FDA-Public Use
  Company Number: US-PFIZER INC-202200322666

PATIENT
  Age: 21 Year
  Sex: Male
  Weight: 121.56 kg

DRUGS (1)
  1. PAXLOVID [Suspect]
     Active Substance: NIRMATRELVIR\RITONAVIR
     Indication: COVID-19
     Dosage: 3 TABLETS (2 PINK AND ONE WHITE) TAKING THEM TWICE A DAY IN 12 HOURS )
     Dates: start: 20220219, end: 20220223

REACTIONS (3)
  - Epistaxis [Recovered/Resolved]
  - Dizziness [Recovered/Resolved]
  - Headache [Not Recovered/Not Resolved]

NARRATIVE: CASE EVENT DATE: 20220201
